FAERS Safety Report 9365848 (Version 2)
Quarter: 2013Q2

REPORT INFORMATION
  Report Type: Spontaneous
  Country: BS (occurrence: BS)
  Receive Date: 20130625
  Receipt Date: 20130628
  Transmission Date: 20140414
  Serious: Yes (Other)
  Sender: FDA-Public Use
  Company Number: PHHY2013BS064320

PATIENT
  Age: 53 Year
  Sex: Female
  Weight: 93 kg

DRUGS (4)
  1. ZOMETA [Suspect]
     Indication: METASTASES TO BONE
     Dosage: 4 MG/100ML, EACH MONTH
     Route: 042
     Dates: start: 201110
  2. CHEMOTHERAPEUTICS [Suspect]
     Dosage: UNK UKN, UNK
  3. AVASTIN [Concomitant]
     Dosage: UNK UKN, UNK
  4. XELODA [Concomitant]
     Dosage: UNK UKN, UNK

REACTIONS (3)
  - Renal impairment [Unknown]
  - Blood urea increased [Not Recovered/Not Resolved]
  - Blood creatinine increased [Not Recovered/Not Resolved]
